FAERS Safety Report 11437461 (Version 1)
Quarter: 2015Q3

REPORT INFORMATION
  Report Type: Spontaneous
  Country: US (occurrence: US)
  Receive Date: 20150821
  Receipt Date: 20150821
  Transmission Date: 20151125
  Serious: No
  Sender: FDA-Public Use
  Company Number: US-ELI_LILLY_AND_COMPANY-US200704006567

PATIENT
  Sex: Female

DRUGS (9)
  1. CYMBALTA [Suspect]
     Active Substance: DULOXETINE HYDROCHLORIDE
     Indication: DEPRESSION
     Dosage: 30 MG, 2/D
     Dates: start: 200703
  2. DURAGESIC [Concomitant]
     Active Substance: FENTANYL
     Dosage: 100 UG, UNK
  3. ADIPEX-P [Concomitant]
     Active Substance: PHENTERMINE HYDROCHLORIDE
     Dosage: 37.5 MG, UNK
  4. ZANAFLEX [Concomitant]
     Active Substance: TIZANIDINE HYDROCHLORIDE
     Dosage: 4 MG, UNK
  5. AMBIEN [Concomitant]
     Active Substance: ZOLPIDEM TARTRATE
     Dosage: 10 MG, UNK
  6. KADIAN [Concomitant]
     Active Substance: MORPHINE SULFATE
     Dosage: 60 MG, UNK
  7. KLONOPIN [Concomitant]
     Active Substance: CLONAZEPAM
     Dosage: 1 MG, UNK
  8. VOLTAREN ^CIBA-GEIGY^ [Concomitant]
     Dosage: 75 MG, UNK
  9. PERCOCET [Concomitant]
     Active Substance: ACETAMINOPHEN\OXYCODONE HYDROCHLORIDE
     Dosage: 1 D/F, UNK

REACTIONS (4)
  - Bladder pain [Not Recovered/Not Resolved]
  - Vulvovaginal pain [Not Recovered/Not Resolved]
  - Dysuria [Not Recovered/Not Resolved]
  - Urethral pain [Not Recovered/Not Resolved]

NARRATIVE: CASE EVENT DATE: 200704
